FAERS Safety Report 8102283-3 (Version None)
Quarter: 2012Q1

REPORT INFORMATION
  Report Type: 
  Country: None (occurrence: None)
  Receive Date: 20120201
  Receipt Date: 20120130
  Transmission Date: 20120608
  Serious: Yes (Other)
  Sender: FDA-Public Use
  Company Number: US-PFIZER INC-2012025555

PATIENT
  Sex: Female
  Weight: 68.027 kg

DRUGS (8)
  1. LISINOPRIL [Concomitant]
     Dosage: 10 MG, 1X/DAY
  2. CHANTIX [Suspect]
     Indication: SMOKING CESSATION THERAPY
     Dosage: 0.5 MG, 2X/DAY
     Route: 048
     Dates: start: 20120103, end: 20120101
  3. CHANTIX [Suspect]
     Dosage: UNK
     Route: 048
     Dates: start: 20120101
  4. PRAVASTATIN [Concomitant]
     Dosage: 20 MG, 1X/DAY
  5. METFORMIN [Concomitant]
     Dosage: 800 MG, 2X/DAY
  6. ACTOS [Concomitant]
     Dosage: 15 MG, 2X/DAY
  7. CITALOPRAM [Concomitant]
     Dosage: 40 MG, 1X/DAY
  8. ASPIRIN [Concomitant]
     Dosage: 325 MG, 1X/DAY

REACTIONS (12)
  - CHEST DISCOMFORT [None]
  - TOOTHACHE [None]
  - SCAR [None]
  - PRURITUS GENERALISED [None]
  - NAUSEA [None]
  - SCAR PAIN [None]
  - BURNING SENSATION [None]
  - MYOCARDIAL INFARCTION [None]
  - ABDOMINAL DISCOMFORT [None]
  - GINGIVAL ERYTHEMA [None]
  - GINGIVAL PAIN [None]
  - SKIN DISORDER [None]
